FAERS Safety Report 13216821 (Version 1)
Quarter: 2017Q1

REPORT INFORMATION
  Report Type: Report from Study
  Country: KR (occurrence: KR)
  Receive Date: 20170210
  Receipt Date: 20170210
  Transmission Date: 20170428
  Serious: Yes (Other)
  Sender: FDA-Public Use
  Company Number: KR-ROCHE-1854742

PATIENT

DRUGS (2)
  1. CAPECITABINE. [Suspect]
     Active Substance: CAPECITABINE
     Indication: DUCTAL ADENOCARCINOMA OF PANCREAS
     Route: 048
  2. OXALIPLATIN. [Suspect]
     Active Substance: OXALIPLATIN
     Indication: DUCTAL ADENOCARCINOMA OF PANCREAS
     Route: 042

REACTIONS (14)
  - Vomiting [Unknown]
  - Fatigue [Unknown]
  - Paraesthesia [Unknown]
  - General physical health deterioration [Unknown]
  - Insomnia [Unknown]
  - Decreased appetite [Unknown]
  - Duodenal ulcer haemorrhage [Unknown]
  - Stomatitis [Unknown]
  - Myalgia [Unknown]
  - Nausea [Unknown]
  - Abdominal pain [Unknown]
  - Constipation [Unknown]
  - Diarrhoea [Unknown]
  - Palmar-plantar erythrodysaesthesia syndrome [Unknown]
